FAERS Safety Report 17213614 (Version 1)
Quarter: 2019Q4

REPORT INFORMATION
  Report Type: Spontaneous
  Country: CN (occurrence: CN)
  Receive Date: 20191230
  Receipt Date: 20191230
  Transmission Date: 20200122
  Serious: Yes (Life-Threatening, Hospitalization)
  Sender: FDA-Public Use
  Company Number: CN-PFIZER INC-2019553115

PATIENT
  Age: 81 Year
  Sex: Female
  Weight: 80 kg

DRUGS (3)
  1. ZYVOX [Suspect]
     Active Substance: LINEZOLID
     Indication: INFECTION
  2. ZYVOX [Suspect]
     Active Substance: LINEZOLID
     Indication: INTERVERTEBRAL DISC PROTRUSION
     Dosage: 0.6 G, 2X/DAY
     Route: 041
     Dates: start: 20191211, end: 20191211
  3. ZYVOX [Suspect]
     Active Substance: LINEZOLID
     Indication: SCIATIC NERVE NEUROPATHY

REACTIONS (2)
  - Anaphylactic shock [Recovered/Resolved]
  - Atrial fibrillation [Recovered/Resolved]

NARRATIVE: CASE EVENT DATE: 20191211
